FAERS Safety Report 6074642-4 (Version None)
Quarter: 2009Q1

REPORT INFORMATION
  Report Type: 
  Country: None (occurrence: None)
  Receive Date: 20090209
  Receipt Date: 20090209
  Transmission Date: 20090719
  Serious: No
  Sender: FDA-Public Use
  Company Number: None

PATIENT
  Age: 31 Year
  Sex: Female
  Weight: 56.6996 kg

DRUGS (1)
  1. PRIMACARE ONE THER-RX PRENATAL VITAMINS [Suspect]
     Indication: PREGNANCY
     Dosage: ONE CAPSULE TAKE ONE DAILY PO
     Route: 048
     Dates: start: 20081003, end: 20081222

REACTIONS (5)
  - DRUG EXPOSURE DURING PREGNANCY [None]
  - EATING DISORDER [None]
  - NAUSEA [None]
  - VOMITING [None]
  - WEIGHT DECREASED [None]
